FAERS Safety Report 4730191-4 (Version None)
Quarter: 2005Q3

REPORT INFORMATION
  Report Type: 
  Country: None (occurrence: None)
  Receive Date: 20050801
  Receipt Date: 20050711
  Transmission Date: 20060218
  Serious: Yes (Other)
  Sender: FDA-Public Use
  Company Number: AU-GLAXOSMITHKLINE-B0387737A

PATIENT
  Age: 23 Year
  Sex: Female

DRUGS (1)
  1. ZYBAN [Suspect]
     Indication: DRUG USE FOR UNKNOWN INDICATION
     Route: 048
     Dates: end: 20050711

REACTIONS (12)
  - CRYING [None]
  - DEPRESSION [None]
  - DRY MOUTH [None]
  - EMOTIONAL DISORDER [None]
  - EMOTIONAL DISTRESS [None]
  - HALLUCINATION, AUDITORY [None]
  - HEADACHE [None]
  - INAPPROPRIATE AFFECT [None]
  - INSOMNIA [None]
  - LETHARGY [None]
  - NIGHT SWEATS [None]
  - NIGHTMARE [None]
